FAERS Safety Report 15273023 (Version 1)
Quarter: 2018Q3

REPORT INFORMATION
  Report Type: Spontaneous
  Country: US (occurrence: US)
  Receive Date: 20180813
  Receipt Date: 20180813
  Transmission Date: 20181010
  Serious: No
  Sender: FDA-Public Use
  Company Number: US-PURDUE-USA-2018-0143881

PATIENT
  Age: 87 Year
  Sex: Female

DRUGS (2)
  1. HYDROCODONE BITARTRATE AND ACETAMINOPHEN [Suspect]
     Active Substance: ACETAMINOPHEN\HYDROCODONE BITARTRATE
     Indication: PRODUCT USED FOR UNKNOWN INDICATION
     Dosage: 5/325 MG
     Route: 048
     Dates: start: 20180607
  2. BUTRANS [Suspect]
     Active Substance: BUPRENORPHINE
     Indication: MUSCULOSKELETAL PAIN
     Dosage: 5 MCG/HR, WEEKLY
     Route: 062
     Dates: start: 20180608

REACTIONS (3)
  - Insomnia [Unknown]
  - Asthenia [Unknown]
  - Drug ineffective [Not Recovered/Not Resolved]
